FAERS Safety Report 22655661 (Version 1)
Quarter: 2023Q2

REPORT INFORMATION
  Report Type: Spontaneous
  Country: CN (occurrence: CN)
  Receive Date: 20230629
  Receipt Date: 20230629
  Transmission Date: 20230722
  Serious: Yes (Other)
  Sender: FDA-Public Use
  Company Number: CN-PFIZER INC-PV202300111790

PATIENT
  Age: 61 Year
  Sex: Male
  Weight: 70 kg

DRUGS (2)
  1. EPIRUBICIN [Suspect]
     Active Substance: EPIRUBICIN
     Indication: Neoplasm
     Dosage: 20 MG, 1X/DAY
     Route: 013
     Dates: start: 20230615, end: 20230615
  2. RALTITREXED [Suspect]
     Active Substance: RALTITREXED
     Indication: Neoplasm
     Dosage: 4 MG, 1X/DAY
     Route: 013
     Dates: start: 20230615, end: 20230615

REACTIONS (1)
  - Liver injury [Recovering/Resolving]

NARRATIVE: CASE EVENT DATE: 20230617
